FAERS Safety Report 7206578-7 (Version None)
Quarter: 2011Q1

REPORT INFORMATION
  Report Type: 
  Country: None (occurrence: None)
  Receive Date: 20110103
  Receipt Date: 20101229
  Transmission Date: 20110831
  Serious: No
  Sender: FDA-Public Use
  Company Number: US-JNJFOC-20101209236

PATIENT
  Sex: Female
  Weight: 90.72 kg

DRUGS (2)
  1. FENTANYL-100 [Suspect]
     Indication: RENAL PAIN
     Route: 062
  2. FENTANYL-100 [Suspect]
     Indication: HEPATIC PAIN
     Route: 062

REACTIONS (6)
  - PAIN [None]
  - TREMOR [None]
  - ABDOMINAL DISCOMFORT [None]
  - NERVOUSNESS [None]
  - WITHDRAWAL SYNDROME [None]
  - TREATMENT NONCOMPLIANCE [None]
